FAERS Safety Report 20619797 (Version 1)
Quarter: 2022Q1

REPORT INFORMATION
  Report Type: Report from Study
  Country: US (occurrence: None)
  Receive Date: 20220322
  Receipt Date: 20220322
  Transmission Date: 20220423
  Serious: Yes (Death, Hospitalization, Other)
  Sender: FDA-Public Use
  Company Number: US-ROCHE-3019803

PATIENT
  Age: 72 Year
  Sex: Female
  Weight: 75.3 kg

DRUGS (2)
  1. OBINUTUZUMAB [Suspect]
     Active Substance: OBINUTUZUMAB
     Indication: Chronic lymphocytic leukaemia
     Dosage: 100 MG ON C1D1, 900 MG ON C1D2, 1000 MG ON C1D8 + C1D15, C2-6D1?ON 06/DEC/2021, SHE RECEIVED THE LAS
     Route: 042
     Dates: start: 20211206, end: 20211206
  2. IBRUTINIB [Suspect]
     Active Substance: IBRUTINIB
     Indication: Chronic lymphocytic leukaemia
     Dosage: 420 MG PO QD FOR 15 CYCLES, DURATION 28 DAYS.?ON 06/DEC/2021, SHE RECEIVED LAST DOSE OF IBRUTINIB.
     Route: 048
     Dates: start: 20211206, end: 20220102

REACTIONS (3)
  - Pneumonia [Not Recovered/Not Resolved]
  - Respiratory failure [Fatal]
  - Embolism [Unknown]

NARRATIVE: CASE EVENT DATE: 20220106
